FAERS Safety Report 8294856-2 (Version None)
Quarter: 2012Q2

REPORT INFORMATION
  Report Type: 
  Country: None (occurrence: None)
  Receive Date: 20120418
  Receipt Date: 20120403
  Transmission Date: 20120825
  Serious: Yes (Death)
  Sender: FDA-Public Use
  Company Number: JP-SANOFI-AVENTIS-2012SA024356

PATIENT
  Age: 30 Year
  Sex: Female

DRUGS (8)
  1. PHENOBARBITAL TAB [Concomitant]
  2. TREMIN [Concomitant]
  3. ROHYPNOL [Concomitant]
  4. ZOLPIDEM [Suspect]
     Dosage: STRENGTH: 10 MG
     Route: 048
  5. ZOLPIDEM [Suspect]
     Dosage: STRENGTH: 10 MG
     Route: 048
  6. HALOPERIDOL [Concomitant]
  7. LENDORMIN [Concomitant]
  8. AMOBAN [Concomitant]

REACTIONS (2)
  - DEATH [None]
  - INTENTIONAL OVERDOSE [None]
